FAERS Safety Report 6863874-0 (Version None)
Quarter: 2010Q3

REPORT INFORMATION
  Report Type: 
  Country: None (occurrence: None)
  Receive Date: 20100721
  Receipt Date: 20080304
  Transmission Date: 20110219
  Serious: No
  Sender: FDA-Public Use
  Company Number: US-PFIZER INC-2008023019

PATIENT
  Sex: Female
  Weight: 102.72 kg

DRUGS (19)
  1. CHANTIX [Suspect]
     Indication: SMOKING CESSATION THERAPY
     Dates: start: 20070101, end: 20080201
  2. FLUOXETINE [Suspect]
     Dates: start: 20070101
  3. LOVASTATIN [Concomitant]
  4. VITAMIN E [Concomitant]
  5. BLACK COHOSH [Concomitant]
     Indication: MENOPAUSE
  6. CLONAZEPAM [Concomitant]
     Indication: SLEEP DISORDER
  7. DIAZEPAM [Concomitant]
     Indication: ANXIETY
  8. OXYBUTYNIN CHLORIDE [Concomitant]
  9. KETOCONOZOLE [Concomitant]
     Indication: INFECTION
  10. IBUPROFEN [Concomitant]
  11. NAPROXEN [Concomitant]
  12. KLONOPIN [Concomitant]
  13. CALCIUM [Concomitant]
     Dates: start: 20071101
  14. LISINOPRIL [Concomitant]
     Indication: HYPERTENSION
  15. LINSEED OIL [Concomitant]
  16. VITAMIN B-12 [Concomitant]
  17. ACETAMINOPHEN W/ PROPOXYPHENE HCL [Concomitant]
  18. ALL OTHER THERAPEUTIC PRODUCTS [Concomitant]
     Indication: CHRONIC OBSTRUCTIVE PULMONARY DISEASE
  19. VITAMIN D [Concomitant]
     Dates: start: 20071101

REACTIONS (3)
  - BONE SCAN ABNORMAL [None]
  - HEADACHE [None]
  - INSOMNIA [None]
